FAERS Safety Report 7285430-5 (Version None)
Quarter: 2011Q1

REPORT INFORMATION
  Report Type: 
  Country: None (occurrence: None)
  Receive Date: 20110210
  Receipt Date: 20101221
  Transmission Date: 20110831
  Serious: Yes (Hospitalization, Other)
  Sender: FDA-Public Use
  Company Number: US-BAYER-201028194NA

PATIENT
  Sex: Female

DRUGS (2)
  1. YASMIN [Suspect]
     Indication: PRODUCT USED FOR UNKNOWN INDICATION
     Route: 048
     Dates: start: 20010701, end: 20080718
  2. NSAID'S [Concomitant]

REACTIONS (7)
  - GASTRITIS [None]
  - HIATUS HERNIA [None]
  - FAECES DISCOLOURED [None]
  - ACQUIRED OESOPHAGEAL WEB [None]
  - CHEST PAIN [None]
  - DEEP VEIN THROMBOSIS [None]
  - HAEMATOCHEZIA [None]
